FAERS Safety Report 11466987 (Version 1)
Quarter: 2015Q3

REPORT INFORMATION
  Report Type: Spontaneous
  Country: DK (occurrence: DK)
  Receive Date: 20150908
  Receipt Date: 20150908
  Transmission Date: 20151125
  Serious: Yes (Life-Threatening, Hospitalization)
  Sender: FDA-Public Use
  Company Number: DK-ORION CORPORATION ORION PHARMA-15_00001286

PATIENT
  Age: 79 Year
  Sex: Female

DRUGS (6)
  1. GAVISCON [Concomitant]
     Active Substance: ALUMINUM HYDROXIDE\MAGNESIUM CARBONATE
     Route: 065
  2. PINEX [Concomitant]
     Active Substance: ACETAMINOPHEN
     Route: 065
  3. PREDNISOLON [Concomitant]
     Active Substance: PREDNISOLONE
     Indication: AUTOIMMUNE HAEMOLYTIC ANAEMIA
     Route: 065
     Dates: start: 20150602
  4. ALDACTONE [Suspect]
     Active Substance: SPIRONOLACTONE
     Dosage: STRENGTH: 100 MG
     Route: 048
     Dates: end: 20150630
  5. MAGNESIA [Concomitant]
     Route: 065
  6. ALDACTONE [Suspect]
     Active Substance: SPIRONOLACTONE
     Indication: ASCITES
     Route: 048
     Dates: start: 20150515

REACTIONS (6)
  - Leukopenia [Not Recovered/Not Resolved]
  - Agranulocytosis [Not Recovered/Not Resolved]
  - Blood creatinine increased [Unknown]
  - Infection [Unknown]
  - Thrombocytopenia [Unknown]
  - Autoimmune haemolytic anaemia [Unknown]

NARRATIVE: CASE EVENT DATE: 201506
